FAERS Safety Report 9904379 (Version 1)
Quarter: 2014Q1

REPORT INFORMATION
  Report Type: Report from Study
  Country: US (occurrence: US)
  Receive Date: 20140218
  Receipt Date: 20140218
  Transmission Date: 20141002
  Serious: Yes (Other)
  Sender: FDA-Public Use
  Company Number: US-ROCHE-1346032

PATIENT
  Age: 12 Year
  Sex: Female
  Weight: 32.31 kg

DRUGS (3)
  1. NUTROPIN AQ [Suspect]
     Indication: BODY HEIGHT BELOW NORMAL
     Route: 058
     Dates: start: 20130903
  2. NUTROPIN AQ [Suspect]
     Indication: GROWTH RETARDATION
     Route: 058
     Dates: start: 201011
  3. DRISDOL [Concomitant]
     Route: 048

REACTIONS (3)
  - Visual impairment [Unknown]
  - Appetite disorder [Unknown]
  - Influenza [Unknown]
